FAERS Safety Report 7219370-4 (Version None)
Quarter: 2011Q1

REPORT INFORMATION
  Report Type: 
  Country: None (occurrence: None)
  Receive Date: 20110111
  Receipt Date: 20110105
  Transmission Date: 20110831
  Serious: No
  Sender: FDA-Public Use
  Company Number: US-PFIZER INC-2010122719

PATIENT
  Sex: Female
  Weight: 70.295 kg

DRUGS (5)
  1. TIKOSYN [Suspect]
     Dosage: 500 UG, 2X/DAY
     Dates: start: 20100825
  2. ACETYLSALICYLIC ACID [Concomitant]
     Indication: ANTICOAGULANT THERAPY
     Dosage: 81 MG, DAILY
     Route: 048
  3. TIKOSYN [Suspect]
     Indication: ATRIAL FIBRILLATION
     Dosage: 0.5 MG, 2X/DAY
     Route: 048
     Dates: start: 20100825
  4. METOPROLOL [Concomitant]
     Dosage: 25 MG, 2X/DAY
  5. WARFARIN [Concomitant]
     Indication: ANTICOAGULANT THERAPY
     Dosage: UNK

REACTIONS (6)
  - DRUG INEFFECTIVE [None]
  - HEADACHE [None]
  - FEELING ABNORMAL [None]
  - PALPITATIONS [None]
  - DIZZINESS [None]
  - FLUSHING [None]
